FAERS Safety Report 5772304-1 (Version None)
Quarter: 2008Q2

REPORT INFORMATION
  Report Type: 
  Country: None (occurrence: None)
  Receive Date: 20080613
  Receipt Date: 20080611
  Transmission Date: 20081010
  Serious: Yes (Death, Life-Threatening, Other)
  Sender: FDA-Public Use
  Company Number: PHHO2008DE06074

PATIENT
  Sex: Male
  Weight: 120 kg

DRUGS (6)
  1. RAD 666 RAD+TAB+PTR [Suspect]
     Indication: HEART TRANSPLANT
     Dosage: 0.5 MG, BID
     Route: 048
     Dates: start: 20080411, end: 20080502
  2. RAD 666 RAD+TAB+PTR [Suspect]
     Dosage: 0.25 MG, QD
     Route: 048
     Dates: end: 20080524
  3. SANDIMMUNE [Suspect]
     Indication: HEART TRANSPLANT
     Dosage: 290 MG, BID
     Route: 048
     Dates: start: 20080409
  4. SANDIMMUNE [Suspect]
     Dosage: 130 MG, BID
     Route: 042
     Dates: start: 20080409
  5. PREDNISOLONE [Suspect]
     Indication: HEART TRANSPLANT
     Dosage: 25 MG, QD
     Route: 048
     Dates: start: 20080414
  6. PREDNISOLONE [Suspect]
     Dosage: 7.5 MG, BID
     Route: 042
     Dates: start: 20080424

REACTIONS (15)
  - ADHESIOLYSIS [None]
  - ANASTOMOTIC COMPLICATION [None]
  - GASTROINTESTINAL NECROSIS [None]
  - HAEMODYNAMIC INSTABILITY [None]
  - IMMUNOSUPPRESSION [None]
  - INTESTINAL RESECTION [None]
  - LARGE INTESTINE PERFORATION [None]
  - LEUKOPENIA [None]
  - MEDIASTINITIS [None]
  - METABOLIC ACIDOSIS [None]
  - MULTI-ORGAN FAILURE [None]
  - PERITONITIS [None]
  - POSTOPERATIVE THORACIC PROCEDURE COMPLICATION [None]
  - SEPSIS [None]
  - STERNAL WIRING [None]
